FAERS Safety Report 5087921-4 (Version None)
Quarter: 2006Q3

REPORT INFORMATION
  Report Type: 
  Country: None (occurrence: None)
  Receive Date: 20060824
  Receipt Date: 20060810
  Transmission Date: 20061208
  Serious: Yes (Other)
  Sender: FDA-Public Use
  Company Number: PHEH2006US10270

PATIENT
  Age: 53 Year
  Sex: Female

DRUGS (4)
  1. ZELNORM [Suspect]
     Indication: DYSPEPSIA
     Dosage: 6 MG, BID
     Route: 048
     Dates: start: 20060808
  2. SINGULAIR [Concomitant]
     Indication: ASTHMA
  3. ALLEGRA [Concomitant]
  4. QVAR 40 [Concomitant]
     Indication: ASTHMA

REACTIONS (11)
  - ABDOMINAL DISTENSION [None]
  - CONDITION AGGRAVATED [None]
  - CONSTIPATION [None]
  - DEPRESSED LEVEL OF CONSCIOUSNESS [None]
  - DIARRHOEA [None]
  - DIZZINESS [None]
  - DRY EYE [None]
  - DYSPEPSIA [None]
  - HEADACHE [None]
  - HOT FLUSH [None]
  - HYPERSOMNIA [None]
